FAERS Safety Report 15129093 (Version 1)
Quarter: 2018Q3

REPORT INFORMATION
  Report Type: Report from Study
  Country: US (occurrence: US)
  Receive Date: 20180711
  Receipt Date: 20180711
  Transmission Date: 20181010
  Serious: Yes (Hospitalization, Other)
  Sender: FDA-Public Use
  Company Number: US-GILEAD-2018-0348990

PATIENT
  Age: 65 Year
  Sex: Male

DRUGS (2)
  1. ELIQUIS [Concomitant]
     Active Substance: APIXABAN
  2. AMBRISENTAN [Suspect]
     Active Substance: AMBRISENTAN
     Indication: PRODUCT USED FOR UNKNOWN INDICATION
     Dosage: 5 MG, QD
     Route: 065
     Dates: start: 20140404

REACTIONS (9)
  - Road traffic accident [Unknown]
  - Fall [Unknown]
  - Syncope [Unknown]
  - Loss of consciousness [Unknown]
  - Vascular injury [Unknown]
  - Weight decreased [Unknown]
  - Ligament rupture [Unknown]
  - Hypotension [Unknown]
  - Haemorrhage [Unknown]

NARRATIVE: CASE EVENT DATE: 201801
